FAERS Safety Report 7371559-X (Version None)
Quarter: 2011Q1

REPORT INFORMATION
  Report Type: 
  Country: None (occurrence: None)
  Receive Date: 20110322
  Receipt Date: 20110322
  Transmission Date: 20110831
  Serious: No
  Sender: FDA-Public Use
  Company Number: None

PATIENT
  Age: 32 Year
  Weight: 89.8122 kg

DRUGS (1)
  1. GIANVI 3 MG/0.02 MG TEVA [Suspect]
     Indication: CONTRACEPTION
     Dosage: 1 PILL DAILY PO
     Route: 048
     Dates: start: 20110213, end: 20110317

REACTIONS (8)
  - PRODUCT SUBSTITUTION ISSUE [None]
  - DYSPHAGIA [None]
  - THROAT TIGHTNESS [None]
  - ABDOMINAL DISCOMFORT [None]
  - OROPHARYNGEAL PAIN [None]
  - WEIGHT DECREASED [None]
  - THROAT IRRITATION [None]
  - GASTROOESOPHAGEAL REFLUX DISEASE [None]
